FAERS Safety Report 25792821 (Version 1)
Quarter: 2025Q3

REPORT INFORMATION
  Report Type: Report from Study
  Country: EU (occurrence: EU)
  Receive Date: 20250911
  Receipt Date: 20250911
  Transmission Date: 20251020
  Serious: Yes (Life-Threatening, Other)
  Sender: BRISTOL-MYERS SQUIBB COMPANY
  Company Number: EU-ABBVIE-6445479

PATIENT
  Age: 78 Year
  Sex: Male

DRUGS (13)
  1. AZACITIDINE [Suspect]
     Active Substance: AZACITIDINE
     Indication: Acute myeloid leukaemia
     Dates: start: 20241205, end: 20250101
  2. AZACITIDINE [Suspect]
     Active Substance: AZACITIDINE
     Dates: start: 20250120, end: 20250228
  3. AZACITIDINE [Suspect]
     Active Substance: AZACITIDINE
     Dates: start: 20250313, end: 20250320
  4. AZACITIDINE [Suspect]
     Active Substance: AZACITIDINE
     Dates: start: 20250417, end: 20250424
  5. AZACITIDINE [Suspect]
     Active Substance: AZACITIDINE
     Dates: start: 20250605, end: 20250611
  6. AZACITIDINE [Suspect]
     Active Substance: AZACITIDINE
     Dates: start: 20250724, end: 20250901
  7. VENCLEXTA [Suspect]
     Active Substance: VENETOCLAX
     Indication: Acute myeloid leukaemia
     Dates: start: 20241205, end: 20250102
  8. VENCLEXTA [Suspect]
     Active Substance: VENETOCLAX
     Dates: start: 20250120, end: 20250203
  9. VENCLEXTA [Suspect]
     Active Substance: VENETOCLAX
     Dates: start: 20250204, end: 20250209
  10. VENCLEXTA [Suspect]
     Active Substance: VENETOCLAX
     Dates: start: 20250313, end: 20250409
  11. VENCLEXTA [Suspect]
     Active Substance: VENETOCLAX
     Dates: start: 20250428, end: 20250518
  12. VENCLEXTA [Suspect]
     Active Substance: VENETOCLAX
     Dates: start: 20250605, end: 20250625
  13. VENCLEXTA [Suspect]
     Active Substance: VENETOCLAX
     Dates: start: 20250724, end: 20250807

REACTIONS (1)
  - Neutropenia [Not Recovered/Not Resolved]

NARRATIVE: CASE EVENT DATE: 20250724
